FAERS Safety Report 7152353-1 (Version None)
Quarter: 2010Q4

REPORT INFORMATION
  Report Type: 
  Country: None (occurrence: None)
  Receive Date: 20101123
  Receipt Date: 20101109
  Transmission Date: 20110411
  Serious: Yes (Hospitalization)
  Sender: FDA-Public Use
  Company Number: AUR-APL-2010-02810

PATIENT
  Age: 64 Year
  Sex: Male
  Weight: 63 kg

DRUGS (8)
  1. SIMVASTATIN [Suspect]
     Dosage: 80MG - ORAL
     Route: 048
  2. AMLODIPINE [Concomitant]
  3. CLOPIDOGREL [Concomitant]
  4. FUROSEMIDE [Concomitant]
  5. GLICLAZIDE [Concomitant]
  6. METFORMIN HCL [Concomitant]
  7. PROPRANOLOL [Concomitant]
  8. TERAZOSIN HCL [Concomitant]

REACTIONS (3)
  - BLOOD CREATINE PHOSPHOKINASE INCREASED [None]
  - GAIT DISTURBANCE [None]
  - RHABDOMYOLYSIS [None]
